FAERS Safety Report 8127899-X (Version None)
Quarter: 2012Q1

REPORT INFORMATION
  Report Type: 
  Country: None (occurrence: None)
  Receive Date: 20120210
  Receipt Date: 20111207
  Transmission Date: 20120608
  Serious: No
  Sender: FDA-Public Use
  Company Number: US-GLAXOSMITHKLINE-A0957795A

PATIENT
  Age: 8 Year
  Sex: Female

DRUGS (2)
  1. MIRALAX [Concomitant]
  2. PAXIL [Suspect]
     Indication: ANXIETY
     Dosage: 1ML PER DAY
     Route: 048
     Dates: start: 20090101

REACTIONS (1)
  - TIC [None]
